FAERS Safety Report 6117381-3 (Version None)
Quarter: 2009Q1

REPORT INFORMATION
  Report Type: 
  Country: None (occurrence: None)
  Receive Date: 20090314
  Receipt Date: 20090128
  Transmission Date: 20090719
  Serious: No
  Sender: FDA-Public Use
  Company Number: US-ABBOTT-09P-163-0498165-00

PATIENT
  Sex: Female
  Weight: 63.56 kg

DRUGS (2)
  1. HUMIRA [Suspect]
     Indication: CROHN'S DISEASE
     Route: 058
     Dates: start: 20080401
  2. ALDACTONE [Concomitant]
     Indication: ACNE
     Dosage: 50 MG 2 A DAY
     Route: 048

REACTIONS (1)
  - INJECTION SITE IRRITATION [None]
